FAERS Safety Report 11820579 (Version 1)
Quarter: 2015Q4

REPORT INFORMATION
  Report Type: Spontaneous
  Country: GB (occurrence: GB)
  Receive Date: 20151210
  Receipt Date: 20151210
  Transmission Date: 20160305
  Serious: Yes (Other)
  Sender: FDA-Public Use
  Company Number: GB-WATSON-2015-13609

PATIENT
  Age: 53 Year
  Sex: Female
  Weight: 56.24 kg

DRUGS (3)
  1. LEVOTHYROXINE. [Concomitant]
     Active Substance: LEVOTHYROXINE
     Indication: PRODUCT USED FOR UNKNOWN INDICATION
     Dosage: 75 ?G, DAILY
     Route: 065
  2. PREDNISOLONE (UNKNOWN) [Suspect]
     Active Substance: PREDNISOLONE
     Indication: UPPER RESPIRATORY TRACT INFLAMMATION
     Dosage: 20 MG, UNK
     Route: 048
     Dates: start: 20150612, end: 20150613
  3. CODEINE LINCTUS [Concomitant]
     Active Substance: CHLOROFORM\CODEINE PHOSPHATE\DRIMIA MARITIMA BULB
     Indication: PRODUCT USED FOR UNKNOWN INDICATION
     Dosage: UNK
     Route: 065

REACTIONS (8)
  - Dizziness [Not Recovered/Not Resolved]
  - Loss of consciousness [Recovered/Resolved]
  - Muscular weakness [Recovered/Resolved]
  - Dysarthria [Recovered/Resolved]
  - Coordination abnormal [Recovered/Resolved]
  - Speech disorder [Recovered/Resolved]
  - Malaise [Recovered/Resolved]
  - Hyperacusis [Recovered/Resolved]

NARRATIVE: CASE EVENT DATE: 20150613
